FAERS Safety Report 4669068-1 (Version None)
Quarter: 2005Q2

REPORT INFORMATION
  Report Type: 
  Country: None (occurrence: None)
  Receive Date: 20050519
  Receipt Date: 20050414
  Transmission Date: 20051028
  Serious: Yes (Hospitalization)
  Sender: FDA-Public Use
  Company Number: 2005056231

PATIENT
  Age: 58 Year
  Sex: Male

DRUGS (3)
  1. VALDECOXIB [Suspect]
     Indication: BACK PAIN
     Dosage: 80 MG (40 MG, 2 IN 1 D), ORAL
     Route: 048
     Dates: start: 20050401, end: 20050403
  2. SIFROL (PRAMIPEXOLE DIHYDROCHLORIDE) [Concomitant]
  3. AKINETON [Concomitant]

REACTIONS (4)
  - MYOCARDIAL INFARCTION [None]
  - POST PROCEDURAL COMPLICATION [None]
  - SKIN IRRITATION [None]
  - VENOUS OCCLUSION [None]
